FAERS Safety Report 21185023 (Version 1)
Quarter: 2022Q3

REPORT INFORMATION
  Report Type: Spontaneous
  Country: JP (occurrence: JP)
  Receive Date: 20220808
  Receipt Date: 20220808
  Transmission Date: 20221027
  Serious: Yes (Death, Disabling, Other)
  Sender: FDA-Public Use
  Company Number: JP-DSJP-DSJ-2022-127300

PATIENT
  Age: 76 Year
  Sex: Female

DRUGS (6)
  1. DENOSUMAB [Suspect]
     Active Substance: DENOSUMAB
     Indication: Metastases to bone
     Dosage: 120 MG
     Route: 058
     Dates: start: 20141030, end: 20171027
  2. DENOSUMAB [Suspect]
     Active Substance: DENOSUMAB
     Dosage: 120 MG
     Route: 058
     Dates: start: 20180615
  3. XELODA [Concomitant]
     Active Substance: CAPECITABINE
     Indication: Breast cancer
     Dosage: 1200 MG, BID
     Route: 048
     Dates: start: 20161104, end: 20190913
  4. TEPRENONE [Concomitant]
     Active Substance: TEPRENONE
     Indication: Breast cancer
     Dosage: 500 MG, BID
     Route: 048
     Dates: start: 20161104, end: 20190913
  5. CALCIUM CARBONATE\CHOLECALCIFEROL\MAGNESIUM CARBONATE [Concomitant]
     Active Substance: CALCIUM CARBONATE\CHOLECALCIFEROL\MAGNESIUM CARBONATE
     Indication: Metastases to bone
     Dosage: 2 DF, QD
     Route: 048
     Dates: start: 20141030
  6. SODIUM GUALENATE MONOHYDRATE [Concomitant]
     Active Substance: SODIUM GUALENATE MONOHYDRATE
     Indication: Breast cancer
     Dosage: A FEW ML, SEVERAL TIMES
     Route: 065
     Dates: start: 20161202

REACTIONS (2)
  - Osteonecrosis of jaw [Not Recovered/Not Resolved]
  - Breast cancer [Fatal]

NARRATIVE: CASE EVENT DATE: 20170113
